FAERS Safety Report 25314559 (Version 7)
Quarter: 2025Q3

REPORT INFORMATION
  Report Type: Report from Study
  Country: CO (occurrence: CO)
  Receive Date: 20250514
  Receipt Date: 20250911
  Transmission Date: 20251021
  Serious: Yes (Hospitalization, Other)
  Sender: TAKEDA
  Company Number: CO-TAKEDA-2025TUS007616

PATIENT
  Age: 34 Year
  Sex: Male
  Weight: 46 kg

DRUGS (2)
  1. VEDOLIZUMAB [Suspect]
     Active Substance: VEDOLIZUMAB
     Indication: Colitis ulcerative
     Dates: start: 20241012, end: 20250808
  2. MESALAMINE [Suspect]
     Active Substance: MESALAMINE
     Indication: Product used for unknown indication

REACTIONS (15)
  - Colitis ulcerative [Unknown]
  - Anaemia [Recovering/Resolving]
  - Poor venous access [Unknown]
  - Rectal haemorrhage [Unknown]
  - Asthenia [Unknown]
  - Fatigue [Unknown]
  - Vomiting [Unknown]
  - Medication error [Recovered/Resolved]
  - Product distribution issue [Unknown]
  - Drug ineffective [Unknown]
  - Product prescribing issue [Recovered/Resolved]
  - Diarrhoea [Recovering/Resolving]
  - Dyschezia [Recovered/Resolved]
  - Abdominal pain [Recovered/Resolved]
  - Flatulence [Not Recovered/Not Resolved]

NARRATIVE: CASE EVENT DATE: 20241012
